FAERS Safety Report 4830564-5 (Version None)
Quarter: 2005Q4

REPORT INFORMATION
  Report Type: 
  Country: None (occurrence: None)
  Receive Date: 20051115
  Receipt Date: 20051102
  Transmission Date: 20060501
  Serious: Yes (Hospitalization, Other)
  Sender: FDA-Public Use
  Company Number: GB-2005-022971

PATIENT
  Sex: Female

DRUGS (1)
  1. MIRENA [Suspect]
     Dosage: 20 UG, INTRA-UTERINE
     Route: 015
     Dates: start: 20040401, end: 20050301

REACTIONS (12)
  - DIZZINESS [None]
  - DRUG EXPOSURE DURING PREGNANCY [None]
  - DRUG INEFFECTIVE [None]
  - DYSGEUSIA [None]
  - FATIGUE [None]
  - INTRA-UTERINE DEATH [None]
  - LOSS OF CONSCIOUSNESS [None]
  - MALAISE [None]
  - PREGNANCY WITH CONTRACEPTIVE DEVICE [None]
  - SALIVARY HYPERSECRETION [None]
  - SMEAR CERVIX ABNORMAL [None]
  - VAGINAL HAEMORRHAGE [None]
